FAERS Safety Report 6231530-8 (Version None)
Quarter: 2009Q2

REPORT INFORMATION
  Report Type: 
  Country: None (occurrence: None)
  Receive Date: 20090616
  Receipt Date: 20090610
  Transmission Date: 20091009
  Serious: Yes (Other)
  Sender: FDA-Public Use
  Company Number: B0579098A

PATIENT
  Sex: Male
  Weight: 86 kg

DRUGS (2)
  1. CLAVAMOX [Suspect]
     Indication: ACUTE TONSILLITIS
     Dosage: 1G PER DAY
     Route: 048
  2. RAMIPRIL [Concomitant]

REACTIONS (5)
  - HYPOTENSION [None]
  - LOSS OF CONSCIOUSNESS [None]
  - NAUSEA [None]
  - VERTIGO [None]
  - VOMITING [None]
